FAERS Safety Report 6766952-X (Version None)
Quarter: 2010Q2

REPORT INFORMATION
  Report Type: 
  Country: None (occurrence: None)
  Receive Date: 20100611
  Receipt Date: 20100603
  Transmission Date: 20101027
  Serious: Yes (Other)
  Sender: FDA-Public Use
  Company Number: US-ABBOTT-10P-163-0645228-00

PATIENT
  Sex: Female

DRUGS (6)
  1. HUMIRA [Suspect]
     Indication: RHEUMATOID ARTHRITIS
     Dates: start: 20100506
  2. HUMIRA [Suspect]
     Route: 058
     Dates: start: 20080101, end: 20090101
  3. PREDNISONE [Concomitant]
     Indication: DRUG USE FOR UNKNOWN INDICATION
     Route: 048
  4. CALCIUM CARBONATE [Concomitant]
     Indication: DRUG USE FOR UNKNOWN INDICATION
  5. WELLBUTRIN [Concomitant]
     Indication: DRUG USE FOR UNKNOWN INDICATION
  6. IBUPROFEN [Concomitant]
     Indication: PAIN
     Dosage: UP TO SIX A DAY AS NEEDED

REACTIONS (5)
  - BLISTER [None]
  - BLISTER INFECTED [None]
  - BURNING SENSATION [None]
  - RASH PUSTULAR [None]
  - SKIN BURNING SENSATION [None]
